FAERS Safety Report 8102574-6 (Version None)
Quarter: 2012Q1

REPORT INFORMATION
  Report Type: 
  Country: None (occurrence: None)
  Receive Date: 20120126
  Receipt Date: 20120114
  Transmission Date: 20120608
  Serious: Yes (Life-Threatening, Other)
  Sender: FDA-Public Use
  Company Number: 2012AP000109

PATIENT
  Age: 65 Year
  Sex: Male

DRUGS (1)
  1. BENAZEPRIL HYDROCHLORIDE [Suspect]
     Indication: HYPERTENSION

REACTIONS (3)
  - DYSPNOEA [None]
  - RASH ERYTHEMATOUS [None]
  - ANGIOEDEMA [None]
